FAERS Safety Report 6421373-4 (Version None)
Quarter: 2009Q4

REPORT INFORMATION
  Report Type: 
  Country: None (occurrence: None)
  Receive Date: 20091030
  Receipt Date: 20091023
  Transmission Date: 20100525
  Serious: Yes (Hospitalization, Disabling, Other)
  Sender: FDA-Public Use
  Company Number: PHEH2009US13130

PATIENT
  Sex: Female

DRUGS (19)
  1. EXELON [Suspect]
     Dosage: 4.6 MG, QD
     Route: 062
     Dates: start: 20090929, end: 20091005
  2. GABAPENTIN [Concomitant]
     Dosage: 400 MG, QID
  3. NAMENDA [Concomitant]
     Indication: DEMENTIA ALZHEIMER'S TYPE
     Dosage: 10 MG, BID
     Route: 048
  4. SERTRALINE HCL [Concomitant]
     Indication: ANXIETY
     Dosage: 25 MG, QD
     Route: 048
  5. SERTRALINE HCL [Concomitant]
     Indication: AFFECTIVE DISORDER
  6. SERTRALINE HCL [Concomitant]
     Indication: DEPRESSION
  7. OMEPRAZOLE [Concomitant]
     Dosage: 20 MG, QD
  8. CHLORDIAZEPOXIDE [Concomitant]
  9. CLIDINIUM [Concomitant]
  10. ZOLPIDEM [Concomitant]
     Indication: SLEEP DISORDER
     Dosage: 10 MG, QHS
     Route: 048
  11. MOBIC [Concomitant]
     Indication: ARTHRALGIA
     Dosage: 7.5 MG, BID
     Route: 048
     Dates: start: 20090827, end: 20090831
  12. ASA TABS [Concomitant]
     Dosage: 81 MG, UNK
  13. VITAMIN B COMPLEX CAP [Concomitant]
     Dosage: UNK
  14. BENEFIBER [Concomitant]
     Dosage: 1-2 TSP AM AND PM IN 6-8 OZ OF FLUID X 7 DAYS THEN AS NEEDED
  15. CLOBETASOL PROPIONATE [Concomitant]
     Dosage: 0.05% OINTMENT
  16. VITAMINS [Concomitant]
     Dosage: UNK
  17. DETROL [Concomitant]
     Dosage: 4 MG, QHS
  18. LIBRAX [Concomitant]
     Dosage: 2.5-5 MG, ONE PO TID
     Route: 048
  19. VITAMIN D [Concomitant]
     Dosage: 50000 U, QW

REACTIONS (9)
  - ABDOMINAL PAIN [None]
  - ASTHENIA [None]
  - CYANOSIS [None]
  - DIZZINESS [None]
  - FALL [None]
  - HYPOTENSION [None]
  - LETHARGY [None]
  - LOGORRHOEA [None]
  - PALPITATIONS [None]
